FAERS Safety Report 9552108 (Version 1)
Quarter: 2013Q3

REPORT INFORMATION
  Report Type: Spontaneous
  Country: US (occurrence: None)
  Receive Date: 20130724
  Receipt Date: 20130724
  Transmission Date: 20140515
  Serious: Yes (Other)
  Sender: FDA-Public Use
  Company Number: PHEH2013US009803

PATIENT
  Age: 69 Year
  Sex: Female

DRUGS (2)
  1. AFINITOR [Suspect]
     Indication: BREAST CANCER STAGE IV
     Route: 048
     Dates: end: 20130315
  2. ARIMIDEX (ANASTROZOLE) [Concomitant]

REACTIONS (2)
  - Platelet count decreased [None]
  - Discomfort [None]
